FAERS Safety Report 8965575 (Version 1)
Quarter: 2012Q4

REPORT INFORMATION
  Report Type: Spontaneous
  Country: US (occurrence: None)
  Receive Date: 20121212
  Receipt Date: 20121212
  Transmission Date: 20130627
  Serious: Yes (Life-Threatening, Hospitalization, Disabling, Other)
  Sender: FDA-Public Use
  Company Number: None

PATIENT
  Age: 23 Year
  Sex: Female
  Weight: 50.35 kg

DRUGS (1)
  1. LEXAPRO [Suspect]
     Indication: ANXIETY DEPRESSION
     Dosage: 20mg   once daily    po
     Route: 048
     Dates: start: 20090101, end: 20120101

REACTIONS (4)
  - Mania [None]
  - Abnormal behaviour [None]
  - Overdose [None]
  - Unevaluable event [None]
